FAERS Safety Report 9693373 (Version 2)
Quarter: 2013Q4

REPORT INFORMATION
  Report Type: Spontaneous
  Country: TR (occurrence: TR)
  Receive Date: 20131114
  Receipt Date: 20131127
  Transmission Date: 20140711
  Serious: Yes (Death, Other)
  Sender: FDA-Public Use
  Company Number: TR-ASTELLAS-2013EU009946

PATIENT
  Age: 22 Year
  Sex: Female

DRUGS (4)
  1. PROGRAF [Suspect]
     Indication: RENAL TRANSPLANT
     Dosage: UNK
     Route: 065
     Dates: start: 20010822, end: 20091211
  2. AZATHIOPRINE [Concomitant]
     Indication: RENAL TRANSPLANT
     Dosage: 100 MG, UNKNOWN/D
     Route: 065
  3. CORTICOSTEROID NOS [Suspect]
     Indication: RENAL TRANSPLANT
     Dosage: 4 MG, UNKNOWN/D
     Route: 065
  4. CICLOSPORINE [Concomitant]
     Indication: RENAL TRANSPLANT
     Dosage: UNK
     Route: 065

REACTIONS (10)
  - Post transplant lymphoproliferative disorder [Fatal]
  - Post transplant lymphoproliferative disorder [Fatal]
  - Burkitt^s lymphoma [Fatal]
  - Pyrexia [Fatal]
  - Hypotension [Fatal]
  - Renal failure acute [Fatal]
  - Graft versus host disease [Fatal]
  - Sepsis [Fatal]
  - Epstein-Barr virus antibody positive [Unknown]
  - Pancytopenia [Unknown]
